FAERS Safety Report 21928204 (Version 1)
Quarter: 2023Q1

REPORT INFORMATION
  Report Type: Spontaneous
  Country: US (occurrence: US)
  Receive Date: 20230130
  Receipt Date: 20230130
  Transmission Date: 20230418
  Serious: Yes (Other)
  Sender: FDA-Public Use
  Company Number: US-PFIZER INC-PV202300013888

PATIENT
  Age: 51 Year
  Sex: Female
  Weight: 85.261 kg

DRUGS (4)
  1. XELJANZ [Suspect]
     Active Substance: TOFACITINIB CITRATE
     Indication: Rheumatoid arthritis
     Dosage: 5 MG, 2X/DAY
     Route: 048
     Dates: start: 20130726, end: 20210419
  2. PLAQUENIL [Concomitant]
     Active Substance: HYDROXYCHLOROQUINE SULFATE
     Indication: Rheumatoid arthritis
     Dosage: UNK
  3. PREDNISONE [Concomitant]
     Active Substance: PREDNISONE
     Indication: Rheumatoid arthritis
     Dosage: UNK
  4. FOLIC ACID [Concomitant]
     Active Substance: FOLIC ACID
     Dosage: UNK

REACTIONS (14)
  - Sjogren^s syndrome [Unknown]
  - Pneumonia [Unknown]
  - Cellulitis [Unknown]
  - Wrist surgery [Unknown]
  - Joint surgery [Unknown]
  - Spinal fusion surgery [Unknown]
  - Drug ineffective [Unknown]
  - Gastroenteritis [Unknown]
  - Upper respiratory tract infection [Unknown]
  - Paraesthesia [Unknown]
  - Urinary tract infection [Unknown]
  - Bronchitis [Unknown]
  - Infection [Unknown]
  - Influenza [Unknown]

NARRATIVE: CASE EVENT DATE: 20130101
